FAERS Safety Report 14499390 (Version 3)
Quarter: 2018Q2

REPORT INFORMATION
  Report Type: Spontaneous
  Country: GB (occurrence: GB)
  Receive Date: 20180207
  Receipt Date: 20180618
  Transmission Date: 20180711
  Serious: Yes (Other)
  Sender: FDA-Public Use
  Company Number: GB-MYLANLABS-2018M1008107

PATIENT
  Age: 74 Year
  Sex: Female

DRUGS (9)
  1. DENOSUMAB [Concomitant]
     Active Substance: DENOSUMAB
     Indication: METASTASES TO BONE
  2. HERCEPTIN [Concomitant]
     Active Substance: TRASTUZUMAB
     Indication: METASTASES TO BONE
  3. PACLITAXEL. [Suspect]
     Active Substance: PACLITAXEL
     Indication: METASTASES TO LUNG
  4. PACLITAXEL. [Suspect]
     Active Substance: PACLITAXEL
     Indication: METASTASES TO BONE
  5. HERCEPTIN [Concomitant]
     Active Substance: TRASTUZUMAB
     Indication: METASTASES TO LUNG
  6. PACLITAXEL. [Suspect]
     Active Substance: PACLITAXEL
     Indication: METAPLASTIC BREAST CARCINOMA
     Dosage: UNK
     Route: 065
  7. DENOSUMAB [Concomitant]
     Active Substance: DENOSUMAB
     Indication: METAPLASTIC BREAST CARCINOMA
     Dosage: UNK
     Route: 065
  8. DENOSUMAB [Concomitant]
     Active Substance: DENOSUMAB
     Indication: METASTASES TO LUNG
  9. HERCEPTIN [Concomitant]
     Active Substance: TRASTUZUMAB
     Indication: METAPLASTIC BREAST CARCINOMA
     Dosage: UNK
     Route: 065

REACTIONS (1)
  - Cystoid macular oedema [Recovered/Resolved]
